FAERS Safety Report 7782435-2 (Version None)
Quarter: 2011Q3

REPORT INFORMATION
  Report Type: 
  Country: None (occurrence: None)
  Receive Date: 20110928
  Receipt Date: 20110921
  Transmission Date: 20111222
  Serious: Yes (Hospitalization)
  Sender: FDA-Public Use
  Company Number: US-BIOGENIDEC-2009BI035548

PATIENT
  Age: 62 Year
  Sex: Female

DRUGS (2)
  1. TYSABRI [Suspect]
     Route: 042
     Dates: start: 20110809
  2. TYSABRI [Suspect]
     Indication: MULTIPLE SCLEROSIS
     Route: 042
     Dates: start: 20080731, end: 20100701

REACTIONS (9)
  - PNEUMONIA [None]
  - INTERVERTEBRAL DISC PROTRUSION [None]
  - BACK PAIN [None]
  - BRONCHITIS [None]
  - DRY MOUTH [None]
  - EXOSTOSIS [None]
  - TOOTH FRACTURE [None]
  - GINGIVAL DISORDER [None]
  - LUMBAR RADICULOPATHY [None]
